FAERS Safety Report 12406502 (Version 4)
Quarter: 2016Q3

REPORT INFORMATION
  Report Type: Spontaneous
  Country: US (occurrence: US)
  Receive Date: 20160526
  Receipt Date: 20160803
  Transmission Date: 20161109
  Serious: Yes (Death, Hospitalization, Other)
  Sender: FDA-Public Use
  Company Number: US-009507513-1605USA011019

PATIENT
  Age: 45 Year
  Sex: Female
  Weight: 74.38 kg

DRUGS (3)
  1. PRINIVIL [Suspect]
     Active Substance: LISINOPRIL
     Indication: HYPERTENSION
     Dosage: 10 MG, QD
     Route: 048
     Dates: start: 20151102, end: 20151117
  2. THIOCTIC ACID [Concomitant]
     Active Substance: THIOCTIC ACID
     Dosage: 50 MG (1 TABLET), QD
     Route: 048
  3. LYRICA [Concomitant]
     Active Substance: PREGABALIN
     Indication: NEUROPATHY PERIPHERAL
     Dosage: 50 MG (1 CAPSULE), TID
     Route: 048
     Dates: start: 20151102

REACTIONS (19)
  - Blood pressure systolic increased [Unknown]
  - Heart rate increased [Unknown]
  - Brain injury [Fatal]
  - Throat lesion [Unknown]
  - Sensory loss [Unknown]
  - Tremor [Unknown]
  - Anaphylactic reaction [Unknown]
  - Angioedema [Recovered/Resolved]
  - Allergic oedema [Unknown]
  - Mouth swelling [Recovered/Resolved]
  - Oral disorder [Unknown]
  - Blood pressure increased [Unknown]
  - Thrombocytopenia [Unknown]
  - Nail dystrophy [Unknown]
  - Stomatitis [Unknown]
  - Cirrhosis alcoholic [Unknown]
  - Dysphagia [Unknown]
  - Oropharyngeal pain [Unknown]
  - Blood pressure diastolic increased [Unknown]

NARRATIVE: CASE EVENT DATE: 201511
